FAERS Safety Report 4876472-5 (Version None)
Quarter: 2005Q4

REPORT INFORMATION
  Report Type: 
  Country: None (occurrence: None)
  Receive Date: 20051206
  Receipt Date: 20051019
  Transmission Date: 20060501
  Serious: No
  Sender: FDA-Public Use
  Company Number: USA0510111419

PATIENT
  Age: 57 Year
  Sex: Female

DRUGS (5)
  1. CYMBALTA [Suspect]
     Indication: BIPOLAR DISORDER
     Dosage: 30 MG
     Dates: start: 20050401
  2. ZYPREXA [Suspect]
     Indication: BIPOLAR DISORDER
     Dosage: 10 MG DAY
  3. LITHOBID [Concomitant]
  4. DEPAKOTE [Concomitant]
  5. LEVOXYL [Concomitant]

REACTIONS (9)
  - AGGRESSION [None]
  - DRY MOUTH [None]
  - ENDODONTIC PROCEDURE [None]
  - GINGIVITIS [None]
  - IRRITABILITY [None]
  - MICTURITION URGENCY [None]
  - OEDEMA PERIPHERAL [None]
  - PYREXIA [None]
  - WEIGHT INCREASED [None]
